FAERS Safety Report 4594677-8 (Version None)
Quarter: 2005Q1

REPORT INFORMATION
  Report Type: 
  Country: None (occurrence: None)
  Receive Date: 20050301
  Receipt Date: 20041210
  Transmission Date: 20050727
  Serious: No
  Sender: FDA-Public Use
  Company Number: US-BRISTOL-MYERS SQUIBB COMPANY-12793832

PATIENT
  Age: 41 Year
  Sex: Female

DRUGS (1)
  1. ERBITUX [Suspect]
     Indication: COLORECTAL CANCER
     Dosage: 2ND DOSE
     Route: 042
     Dates: start: 20041207, end: 20041207

REACTIONS (1)
  - SWELLING FACE [None]
